FAERS Safety Report 10776020 (Version 2)
Quarter: 2015Q1

REPORT INFORMATION
  Report Type: Report from Study
  Country: IL (occurrence: IL)
  Receive Date: 20150209
  Receipt Date: 20150216
  Transmission Date: 20150721
  Serious: Yes (Hospitalization)
  Sender: FDA-Public Use
  Company Number: IL-009507513-1502ISR001267

PATIENT
  Age: 87 Year
  Sex: Male
  Weight: 56 kg

DRUGS (4)
  1. OMNIC [Concomitant]
     Active Substance: TAMSULOSIN HYDROCHLORIDE
     Indication: BENIGN PROSTATIC HYPERPLASIA
     Dosage: 0.4 MG, QD
     Route: 048
     Dates: start: 20080915
  2. PEMBROLIZUMAB. [Suspect]
     Active Substance: PEMBROLIZUMAB
     Dosage: 200 MG, Q3W, 100 MG/4ML
     Route: 042
     Dates: start: 20150125, end: 20150125
  3. PEMBROLIZUMAB. [Suspect]
     Active Substance: PEMBROLIZUMAB
     Indication: URETHRAL CANCER METASTATIC
     Dosage: 200 MG, 100 MG/4ML
     Route: 042
     Dates: start: 20150104, end: 20150104
  4. MICROPIRIN [Concomitant]
     Indication: ANTIPLATELET THERAPY
     Dosage: 500 MG, QD
     Route: 048
     Dates: start: 20080915

REACTIONS (1)
  - Haematuria [Recovered/Resolved]

NARRATIVE: CASE EVENT DATE: 20150129
